FAERS Safety Report 4473632-2 (Version None)
Quarter: 2004Q3

REPORT INFORMATION
  Report Type: 
  Country: None (occurrence: None)
  Receive Date: 20040907
  Receipt Date: 20040608
  Transmission Date: 20050211
  Serious: No
  Sender: FDA-Public Use
  Company Number: USA040668945

PATIENT
  Age: 55 Year
  Sex: Female
  Weight: 101 kg

DRUGS (4)
  1. ALIMTA [Suspect]
     Indication: PLEURAL MESOTHELIOMA MALIGNANT
     Dosage: 1000 MG OTHER
     Route: 050
     Dates: start: 20040601
  2. DEXAMETHASONE [Concomitant]
  3. FOLIC ACID [Concomitant]
  4. VITAMIN B12 FOR INJECTION (CYANOCOBALAMIN) [Concomitant]

REACTIONS (3)
  - CHILLS [None]
  - OEDEMA PERIPHERAL [None]
  - RASH [None]
